FAERS Safety Report 25371904 (Version 1)
Quarter: 2025Q2

REPORT INFORMATION
  Report Type: Spontaneous
  Country: JP (occurrence: JP)
  Receive Date: 20250529
  Receipt Date: 20250529
  Transmission Date: 20250716
  Serious: Yes (Other)
  Sender: SUNOVION
  Company Number: JP-SUMITOMO PHARMA SWITZERLAND GMBH-2025SPA006531

PATIENT

DRUGS (1)
  1. VIBEGRON [Suspect]
     Active Substance: VIBEGRON
     Indication: Hypertonic bladder
     Route: 048
     Dates: start: 202410, end: 202502

REACTIONS (1)
  - Renal disorder [Recovered/Resolved]
